FAERS Safety Report 13355662 (Version 2)
Quarter: 2017Q4

REPORT INFORMATION
  Report Type: Spontaneous
  Country: IN (occurrence: IN)
  Receive Date: 20170321
  Receipt Date: 20171027
  Transmission Date: 20180320
  Serious: Yes (Disabling, Other)
  Sender: FDA-Public Use
  Company Number: IN-GLENMARK PHARMACEUTICALS-2017GMK026802

PATIENT
  Age: 19 Year
  Sex: Male

DRUGS (1)
  1. TRIAMCINOLONE ACETONIDE. [Suspect]
     Active Substance: TRIAMCINOLONE ACETONIDE
     Indication: JOINT ANKYLOSIS
     Dosage: UNK
     Route: 014

REACTIONS (3)
  - Retinal artery occlusion [Not Recovered/Not Resolved]
  - Embolism [Unknown]
  - Retinal ischaemia [Unknown]
